FAERS Safety Report 10192405 (Version 5)
Quarter: 2014Q4

REPORT INFORMATION
  Report Type: Report from Study
  Country: US (occurrence: US)
  Receive Date: 20140523
  Receipt Date: 20141222
  Transmission Date: 20150528
  Serious: Yes (Hospitalization)
  Sender: FDA-Public Use
  Company Number: US-ACTELION-A-US2012-68359

PATIENT
  Age: 55 Year
  Sex: Female

DRUGS (4)
  1. PLAVIX [Concomitant]
     Active Substance: CLOPIDOGREL BISULFATE
  2. REMODULIN [Concomitant]
     Active Substance: TREPROSTINIL
  3. TRACLEER [Suspect]
     Active Substance: BOSENTAN\BOSENTAN MONOHYDRATE
     Indication: PULMONARY ARTERIAL HYPERTENSION
     Dosage: UNK
     Route: 048
  4. SILDENAFIL. [Concomitant]
     Active Substance: SILDENAFIL

REACTIONS (12)
  - Anaemia [Unknown]
  - Colonoscopy [Unknown]
  - Endoscopy [Unknown]
  - Infusion site infection [Unknown]
  - Transfusion [Unknown]
  - Infusion site pain [Unknown]
  - Catheter site infection [Unknown]
  - Haemorrhage [Unknown]
  - Sepsis [Unknown]
  - Infusion site erythema [Unknown]
  - Infusion site irritation [Unknown]
  - Infusion site induration [Unknown]

NARRATIVE: CASE EVENT DATE: 201404
